FAERS Safety Report 15945203 (Version 2)
Quarter: 2019Q2

REPORT INFORMATION
  Report Type: Report from Study
  Country: US (occurrence: US)
  Receive Date: 20190211
  Receipt Date: 20190520
  Transmission Date: 20190711
  Serious: No
  Sender: FDA-Public Use
  Company Number: US-ACADIA PHARMACEUTICALS INC.-ACA-2019-011431

PATIENT
  Age: 81 Year
  Sex: Male
  Weight: 80 kg

DRUGS (3)
  1. NUPLAZID [Suspect]
     Active Substance: PIMAVANSERIN TARTRATE
     Indication: PARKINSON^S DISEASE PSYCHOSIS
     Dosage: 34 MG, QD
     Route: 048
     Dates: start: 20190102, end: 20190115
  2. NUPLAZID [Suspect]
     Active Substance: PIMAVANSERIN TARTRATE
     Indication: HALLUCINATION
     Dosage: 34 MG, QD
     Route: 048
     Dates: start: 20190222
  3. NUPLAZID [Suspect]
     Active Substance: PIMAVANSERIN TARTRATE
     Indication: DELUSION

REACTIONS (8)
  - Constipation [Unknown]
  - Confusional state [Not Recovered/Not Resolved]
  - Nocturnal fear [Recovering/Resolving]
  - Fall [Unknown]
  - Therapeutic response unexpected [Unknown]
  - Hallucination [Recovering/Resolving]
  - Gait disturbance [Not Recovered/Not Resolved]
  - Throat tightness [Unknown]

NARRATIVE: CASE EVENT DATE: 201901
